FAERS Safety Report 5360645-1 (Version None)
Quarter: 2007Q2

REPORT INFORMATION
  Report Type: 
  Country: None (occurrence: None)
  Receive Date: 20070618
  Receipt Date: 20070605
  Transmission Date: 20071010
  Serious: Yes (Life-Threatening, Hospitalization)
  Sender: FDA-Public Use
  Company Number: GB-ROCHE-496986

PATIENT
  Age: 72 Year
  Sex: Female
  Weight: 64 kg

DRUGS (4)
  1. XENICAL [Suspect]
     Indication: OBESITY
     Route: 048
     Dates: start: 20060531, end: 20070523
  2. CALCICHEW D3 [Concomitant]
     Indication: OSTEOPOROSIS
     Route: 048
     Dates: start: 20030303
  3. OMEPRAZOLE [Concomitant]
     Route: 048
     Dates: start: 20050424
  4. ALENDRONIC ACID [Concomitant]
     Indication: OSTEOPOROSIS
     Route: 048
     Dates: start: 20030303

REACTIONS (2)
  - ACUTE CORONARY SYNDROME [None]
  - CHEST PAIN [None]
